FAERS Safety Report 9063982 (Version 4)
Quarter: 2013Q4

REPORT INFORMATION
  Report Type: Spontaneous
  Country: US (occurrence: US)
  Receive Date: 20130213
  Receipt Date: 20131104
  Transmission Date: 20140711
  Serious: Yes (Hospitalization)
  Sender: FDA-Public Use
  Company Number: US-B.I. PHARMACEUTICALS,INC./RIDGEFIELD-2013-BI-03930BP

PATIENT
  Age: 76 Year
  Sex: Female
  Weight: 74.84 kg

DRUGS (13)
  1. PRADAXA [Suspect]
     Indication: ATRIAL FIBRILLATION
     Dosage: 150 MG
     Dates: start: 20110923, end: 20120324
  2. AMIODARONE [Concomitant]
     Dosage: 200 MG
  3. LEVOTHYROXINE [Concomitant]
     Dosage: 88 MCG
  4. PROTONIX [Concomitant]
     Dosage: 40 MG
  5. ASPIRIN [Concomitant]
     Dosage: 81 MG
  6. HYDROCHLOROTHIAZIDE [Concomitant]
     Dosage: 12.5 MG
  7. CRESTOR [Concomitant]
     Dosage: 40 MG
  8. METFORMIN [Concomitant]
     Dosage: 1000 MG
  9. LORAZEPAM [Concomitant]
     Dosage: 2 MG
  10. AVAPRO [Concomitant]
     Dosage: 300 MG
  11. TRAMADOL [Concomitant]
  12. EFFEXOR [Concomitant]
     Dosage: 75 MG
  13. NITROGLYCERIN [Concomitant]

REACTIONS (2)
  - Gastrointestinal haemorrhage [Unknown]
  - Coagulopathy [Unknown]
